FAERS Safety Report 4480451-X (Version None)
Quarter: 2004Q4

REPORT INFORMATION
  Report Type: 
  Country: None (occurrence: None)
  Receive Date: 20041018
  Receipt Date: 20041008
  Transmission Date: 20050328
  Serious: No
  Sender: FDA-Public Use
  Company Number: A0529130A

PATIENT
  Age: 61 Year
  Sex: Female

DRUGS (1)
  1. NICORETTE [Suspect]
     Indication: FEAR
     Dosage: TRANSBUCC
     Dates: start: 20020101

REACTIONS (4)
  - CATARACT [None]
  - DRUG WITHDRAWAL SYNDROME [None]
  - INCREASED APPETITE [None]
  - VISUAL ACUITY REDUCED [None]
